FAERS Safety Report 6103275-6 (Version None)
Quarter: 2009Q1

REPORT INFORMATION
  Report Type: 
  Country: None (occurrence: None)
  Receive Date: 20090302
  Receipt Date: 20090212
  Transmission Date: 20090719
  Serious: Yes (Death)
  Sender: FDA-Public Use
  Company Number: 1000004906

PATIENT
  Age: 38 Year
  Sex: Male

DRUGS (3)
  1. CARBAMAZEPINE [Suspect]
  2. ACETAMINOPHEN [Suspect]
  3. COUGH/ COLD PREPARATION (UNKNOWN) [Suspect]

REACTIONS (2)
  - COMPLETED SUICIDE [None]
  - MULTIPLE DRUG OVERDOSE INTENTIONAL [None]
